FAERS Safety Report 18607830 (Version 1)
Quarter: 2020Q4

REPORT INFORMATION
  Report Type: Spontaneous
  Country: IR (occurrence: IR)
  Receive Date: 20201212
  Receipt Date: 20201212
  Transmission Date: 20210114
  Serious: No
  Sender: FDA-Public Use
  Company Number: IR-LUPIN PHARMACEUTICALS INC.-2020-04547

PATIENT
  Age: 27 Year
  Sex: Female

DRUGS (4)
  1. RIFAMPIN. [Suspect]
     Active Substance: RIFAMPIN
     Indication: LEPROMATOUS LEPROSY
     Dosage: 600 MILLIGRAM, UNK
     Route: 065
  2. CLOFAZIMINE [Suspect]
     Active Substance: CLOFAZIMINE
     Dosage: 50 MILLIGRAM, QD
     Route: 065
  3. CLOFAZIMINE [Suspect]
     Active Substance: CLOFAZIMINE
     Indication: LEPROMATOUS LEPROSY
     Dosage: 150 MILLIGRAM ONCE A MONTH
     Route: 065
  4. DAPSONE. [Suspect]
     Active Substance: DAPSONE
     Indication: LEPROMATOUS LEPROSY
     Dosage: 100 MILLIGRAM CONTINUED FOR 12 MONTHS
     Route: 065

REACTIONS (1)
  - Exposure via breast milk [Unknown]
